FAERS Safety Report 15229133 (Version 1)
Quarter: 2018Q3

REPORT INFORMATION
  Report Type: Spontaneous
  Country: US (occurrence: US)
  Receive Date: 20180707
  Receipt Date: 20180707
  Transmission Date: 20181010
  Serious: Yes (Other)
  Sender: FDA-Public Use
  Company Number: None

PATIENT
  Age: 57 Year
  Sex: Female
  Weight: 78.75 kg

DRUGS (1)
  1. ALPRAZOLAM 1 MG SUN PHARM [Suspect]
     Active Substance: ALPRAZOLAM
     Indication: ANXIETY
     Dosage: ?          QUANTITY:1 TABLET(S);?
     Route: 048

REACTIONS (4)
  - Therapeutic response changed [None]
  - Product substitution issue [None]
  - Drug effect decreased [None]
  - Formication [None]

NARRATIVE: CASE EVENT DATE: 20180607
